FAERS Safety Report 13766781 (Version 1)
Quarter: 2017Q3

REPORT INFORMATION
  Report Type: Spontaneous
  Country: US (occurrence: US)
  Receive Date: 20170718
  Receipt Date: 20170718
  Transmission Date: 20171127
  Serious: Yes (Other)
  Sender: FDA-Public Use
  Company Number: None

PATIENT
  Age: 69 Year
  Sex: Male
  Weight: 62.55 kg

DRUGS (30)
  1. SERAX [Concomitant]
     Active Substance: OXAZEPAM
  2. CARAFATE [Concomitant]
     Active Substance: SUCRALFATE
  3. LIDOCAINE-HC-AC [Concomitant]
  4. ATROVENT [Concomitant]
     Active Substance: IPRATROPIUM BROMIDE
  5. OXYCODONE [Concomitant]
     Active Substance: OXYCODONE
  6. FLORINEF ACETATE [Concomitant]
     Active Substance: FLUDROCORTISONE ACETATE
  7. MIRALAX [Concomitant]
     Active Substance: POLYETHYLENE GLYCOL 3350
  8. SENOKOT [Concomitant]
     Active Substance: SENNOSIDES
  9. RECLAST [Concomitant]
     Active Substance: ZOLEDRONIC ACID
  10. CHARCO CAPS [Concomitant]
     Active Substance: ACTIVATED CHARCOAL
  11. ORGRANIC PROTEIN POWDER [Concomitant]
  12. ERYTHROMYCIN. [Suspect]
     Active Substance: ERYTHROMYCIN
     Indication: IMPAIRED GASTRIC EMPTYING
     Dosage: ?          OTHER STRENGTH:MG/MG;QUANTITY:3 TABLET(S);?
     Route: 048
  13. MECLIZINE [Concomitant]
     Active Substance: MECLIZINE HYDROCHLORIDE
  14. COLCHICINE. [Concomitant]
     Active Substance: COLCHICINE
  15. DOMPERIDONE [Concomitant]
     Active Substance: DOMPERIDONE
  16. VOLTAREN [Concomitant]
     Active Substance: DICLOFENAC SODIUM
  17. PRAVACHOL [Concomitant]
     Active Substance: PRAVASTATIN SODIUM
  18. ASPIRIN. [Concomitant]
     Active Substance: ASPIRIN
  19. SODIUM [Concomitant]
     Active Substance: SODIUM
  20. CREON [Concomitant]
     Active Substance: PANCRELIPASE AMYLASE\PANCRELIPASE LIPASE\PANCRELIPASE PROTEASE
  21. VALIUM [Concomitant]
     Active Substance: DIAZEPAM
  22. MAALOX ANTACID [Concomitant]
     Active Substance: ALUMINUM HYDROXIDE\DIMETHICONE\MAGNESIUM HYDROXIDE
  23. ECONAZOLE NITRATE. [Concomitant]
     Active Substance: ECONAZOLE NITRATE
  24. ERYTHROMYCIN. [Concomitant]
     Active Substance: ERYTHROMYCIN
  25. VITAMIN D [Concomitant]
     Active Substance: CHOLECALCIFEROL
  26. TOPROL XL [Concomitant]
     Active Substance: METOPROLOL SUCCINATE
  27. PROBIOTIC [Concomitant]
     Active Substance: PROBIOTICS NOS
  28. NITROGLYCERIN. [Concomitant]
     Active Substance: NITROGLYCERIN
  29. VITAMIN B12 [Concomitant]
     Active Substance: CYANOCOBALAMIN
  30. XARELTO [Concomitant]
     Active Substance: RIVAROXABAN

REACTIONS (2)
  - Erectile dysfunction [None]
  - Fluid retention [None]

NARRATIVE: CASE EVENT DATE: 20170708
